FAERS Safety Report 4569785-8 (Version None)
Quarter: 2005Q1

REPORT INFORMATION
  Report Type: 
  Country: None (occurrence: None)
  Receive Date: 20050203
  Receipt Date: 20040720
  Transmission Date: 20050727
  Serious: Yes (Hospitalization)
  Sender: FDA-Public Use
  Company Number: US-MERCK-0407USA01746

PATIENT
  Age: 52 Year
  Sex: Male
  Weight: 91 kg

DRUGS (5)
  1. VIOXX [Suspect]
     Indication: ARTHRITIS
     Route: 048
     Dates: start: 20020101, end: 20030201
  2. LIPITOR [Concomitant]
     Route: 065
  3. TRANXENE [Concomitant]
     Route: 065
     Dates: start: 19920101
  4. PROZAC [Concomitant]
     Route: 065
  5. ZANTAC [Concomitant]
     Route: 065

REACTIONS (5)
  - ACUTE MYOCARDIAL INFARCTION [None]
  - BLOOD PRESSURE INCREASED [None]
  - CORONARY ARTERY ATHEROSCLEROSIS [None]
  - EMOTIONAL DISTRESS [None]
  - OBSTRUCTIVE AIRWAYS DISORDER [None]
